FAERS Safety Report 11391389 (Version 3)
Quarter: 2015Q4

REPORT INFORMATION
  Report Type: Report from Study
  Country: US (occurrence: US)
  Receive Date: 20150818
  Receipt Date: 20151005
  Transmission Date: 20160304
  Serious: Yes (Other)
  Sender: FDA-Public Use
  Company Number: US-AMGEN-USASL2015082799

PATIENT
  Age: 64 Year
  Sex: Male

DRUGS (2)
  1. ENBREL [Suspect]
     Active Substance: ETANERCEPT
     Indication: PSORIATIC ARTHROPATHY
  2. ENBREL [Suspect]
     Active Substance: ETANERCEPT
     Indication: PSORIASIS
     Dosage: 50 MG, 2 TIMES/WK
     Route: 058
     Dates: start: 201402, end: 201508

REACTIONS (9)
  - Pemphigoid [Unknown]
  - Ill-defined disorder [Unknown]
  - Upper-airway cough syndrome [Unknown]
  - Crepitations [Unknown]
  - Upper respiratory tract infection [Unknown]
  - Tendon rupture [Unknown]
  - Sinus disorder [Recovered/Resolved]
  - Adverse drug reaction [Unknown]
  - Insomnia [Unknown]
